FAERS Safety Report 8905471 (Version 2)
Quarter: 2013Q1

REPORT INFORMATION
  Report Type: Not Available
  Country: FR (occurrence: FR)
  Receive Date: 20121113
  Receipt Date: 20130201
  Transmission Date: 20140127
  Serious: Yes (Hospitalization)
  Sender: FDA-Public Use
  Company Number: FR-NAPPMUNDI-GBR-2012-0012039

PATIENT
  Age: 84 Year
  Sex: Male

DRUGS (21)
  1. OXYCONTIN LP, COMPRIME PELLICULE A LIBERATION PROLONGEE [Suspect]
     Indication: PAIN
     Dosage: 10 MG, AM
     Route: 048
     Dates: start: 20121005, end: 20121005
  2. OXYCONTIN LP, COMPRIME PELLICULE A LIBERATION PROLONGEE [Suspect]
     Dosage: 20 MG, PM
     Route: 048
     Dates: start: 20121004, end: 20121004
  3. OXYCODONE HYDROCHLORIDE [Suspect]
     Indication: PAIN
     Dosage: 5 MG, DAILY
     Route: 048
     Dates: start: 20121006, end: 20121006
  4. OXYCODONE HYDROCHLORIDE [Suspect]
     Dosage: 5 MG, DAILY
     Route: 048
     Dates: start: 20121008, end: 20121009
  5. VELCADE [Suspect]
     Indication: PLASMA CELL MYELOMA
     Dosage: DAY 35
     Route: 042
     Dates: start: 20121004, end: 20121004
  6. VELCADE [Suspect]
     Dosage: DAY 22
     Route: 042
  7. VELCADE [Suspect]
     Dosage: DAY 15
     Route: 042
  8. VELCADE [Suspect]
     Dosage: DAY 8
     Route: 042
  9. VELCADE [Suspect]
     Dosage: DAY 1
     Route: 042
     Dates: start: 201204, end: 201204
  10. LYRICA [Suspect]
     Indication: PAIN
     Dosage: 150 MG, DAILY
     Route: 048
     Dates: start: 20120809, end: 20121005
  11. SKENAN [Suspect]
     Indication: PAIN
     Dosage: UNK
     Route: 048
     Dates: start: 20120830, end: 20121004
  12. ALKERAN                            /00006401/ [Concomitant]
     Indication: PLASMA CELL MYELOMA
     Dosage: 0.2 MG/KG/DAY, ADMINISTERED ON DAY 1 TO DAY 4 EVERY 5 WEEKS
     Route: 065
  13. PREDNISONE [Concomitant]
     Indication: PLASMA CELL MYELOMA
     Dosage: 2 MG/KG/DAY ADMINISTERED ON DAY 1 TO DAY 4 EVERY 5 WEEKS
     Route: 065
  14. DOLIPRANE [Concomitant]
  15. GLUCOPHAGE [Concomitant]
  16. MOLSIDOMINE [Concomitant]
  17. BISOPROLOL [Concomitant]
  18. PLAVIX [Concomitant]
  19. PRAVASTATIN [Concomitant]
  20. BACTRIM [Concomitant]
  21. ZELITREX [Concomitant]

REACTIONS (3)
  - Fall [Recovered/Resolved]
  - Confusional state [Recovered/Resolved]
  - Disorientation [Recovered/Resolved]
